FAERS Safety Report 7321380-3 (Version None)
Quarter: 2011Q1

REPORT INFORMATION
  Report Type: 
  Country: None (occurrence: None)
  Receive Date: 20110228
  Receipt Date: 20110217
  Transmission Date: 20110831
  Serious: Yes (Other)
  Sender: FDA-Public Use
  Company Number: US-JNJFOC-20110206646

PATIENT
  Age: 57 Year
  Sex: Male
  Weight: 99.79 kg

DRUGS (4)
  1. PRILOSEC [Concomitant]
  2. ZOLOFT [Concomitant]
     Indication: DEPRESSION
  3. STELARA [Suspect]
     Indication: PSORIASIS
     Route: 058
  4. TWYNSTA [Concomitant]
     Indication: HYPERTENSION

REACTIONS (6)
  - LETHARGY [None]
  - HEADACHE [None]
  - DIZZINESS [None]
  - INCOHERENT [None]
  - AMNESIA [None]
  - CONFUSIONAL STATE [None]
